FAERS Safety Report 7413430-0 (Version None)
Quarter: 2011Q2

REPORT INFORMATION
  Report Type: 
  Country: None (occurrence: None)
  Receive Date: 20110413
  Receipt Date: 20110401
  Transmission Date: 20111010
  Serious: Yes (Other)
  Sender: FDA-Public Use
  Company Number: PHHY2010BR74554

PATIENT
  Sex: Female

DRUGS (1)
  1. DESERILA [Suspect]

REACTIONS (2)
  - FEELING OF DESPAIR [None]
  - DRUG DEPENDENCE [None]
